FAERS Safety Report 8333517-8 (Version None)
Quarter: 2012Q2

REPORT INFORMATION
  Report Type: 
  Country: None (occurrence: None)
  Receive Date: 20120503
  Receipt Date: 20101112
  Transmission Date: 20120825
  Serious: No
  Sender: FDA-Public Use
  Company Number: US-TEVA-2010005909

PATIENT
  Sex: Female
  Weight: 72.64 kg

DRUGS (2)
  1. NUVIGIL [Suspect]
     Indication: SLEEP APNOEA SYNDROME
  2. NUVIGIL [Suspect]
     Indication: NARCOLEPSY
     Dosage: 250 MILLIGRAM;
     Route: 048
     Dates: start: 20100801

REACTIONS (10)
  - INSOMNIA [None]
  - BLOOD GLUCOSE DECREASED [None]
  - GINGIVAL BLEEDING [None]
  - URTICARIA [None]
  - BRUXISM [None]
  - THERAPEUTIC RESPONSE UNEXPECTED [None]
  - BLOOD PRESSURE INCREASED [None]
  - VISUAL IMPAIRMENT [None]
  - INTENTIONAL DRUG MISUSE [None]
  - CONSTIPATION [None]
